FAERS Safety Report 18277084 (Version 1)
Quarter: 2020Q3

REPORT INFORMATION
  Report Type: Spontaneous
  Country: US (occurrence: US)
  Receive Date: 20200916
  Receipt Date: 20200916
  Transmission Date: 20201103
  Serious: Yes (Life-Threatening, Hospitalization, Disabling)
  Sender: FDA-Public Use
  Company Number: None

PATIENT
  Age: 19 Year
  Sex: Female
  Weight: 86.18 kg

DRUGS (5)
  1. NEXPLANON [Suspect]
     Active Substance: ETONOGESTREL
  2. MOTRIN LIQUID GEL CAPSULES [Concomitant]
  3. BREVAIL (PLANT LIGNAN EXTRACT) [Concomitant]
  4. EVENING PRIMROSE OIL [Concomitant]
     Active Substance: EVENING PRIMROSE OIL\HERBALS
  5. CALCIUM ELDERBERRY GUMMIES [Concomitant]

REACTIONS (11)
  - Menorrhagia [None]
  - Headache [None]
  - Middle insomnia [None]
  - Quality of life decreased [None]
  - Implantation complication [None]
  - Ovarian cyst ruptured [None]
  - Fatigue [None]
  - Acne [None]
  - Dysmenorrhoea [None]
  - Appendicitis perforated [None]
  - Weight increased [None]

NARRATIVE: CASE EVENT DATE: 20200914
